FAERS Safety Report 6318051-9 (Version None)
Quarter: 2009Q3

REPORT INFORMATION
  Report Type: 
  Country: None (occurrence: None)
  Receive Date: 20090820
  Receipt Date: 20090820
  Transmission Date: 20100115
  Serious: Yes (Hospitalization)
  Sender: FDA-Public Use
  Company Number: None

PATIENT
  Age: 66 Year
  Sex: Male

DRUGS (2)
  1. ENALAPRIL MALEATE [Suspect]
     Indication: HYPERTENSION
     Dosage: 20 MG BID PO
     Route: 048
     Dates: start: 20050520, end: 20080812
  2. ENALAPRIL MALEATE [Suspect]
     Dosage: 10 MG BID PO
     Route: 048
     Dates: start: 20080812, end: 20080829

REACTIONS (1)
  - HYPERKALAEMIA [None]
